FAERS Safety Report 7468955-9 (Version None)
Quarter: 2011Q2

REPORT INFORMATION
  Report Type: 
  Country: None (occurrence: None)
  Receive Date: 20110429
  Receipt Date: 20110425
  Transmission Date: 20111010
  Serious: Yes (Hospitalization)
  Sender: FDA-Public Use
  Company Number: A0924340A

PATIENT
  Age: 74 Year
  Sex: Female

DRUGS (1)
  1. METHYLCELLULOSE POWDER (METHYLCELLULOSE) REGULAR [Suspect]
     Indication: PRODUCT USED FOR UNKNOWN INDICATION
     Dosage: ORAL
     Route: 048

REACTIONS (3)
  - MALAISE [None]
  - GOUT [None]
  - JOINT SWELLING [None]
